FAERS Safety Report 17180898 (Version 1)
Quarter: 2019Q4

REPORT INFORMATION
  Report Type: Spontaneous
  Country: US (occurrence: US)
  Receive Date: 20191219
  Receipt Date: 20191219
  Transmission Date: 20200122
  Serious: Yes (Other)
  Sender: FDA-Public Use
  Company Number: US-UCBSA-082121

PATIENT
  Sex: Female

DRUGS (1)
  1. CIMZIA [Suspect]
     Active Substance: CERTOLIZUMAB PEGOL
     Indication: CROHN^S DISEASE
     Dosage: EXP DATE: NOV-2015
     Dates: start: 20090406, end: 201311

REACTIONS (4)
  - Sinusitis [Not Recovered/Not Resolved]
  - Dental caries [Not Recovered/Not Resolved]
  - Anal fistula [Unknown]
  - Thrombosis [Not Recovered/Not Resolved]
